FAERS Safety Report 18188350 (Version 1)
Quarter: 2020Q3

REPORT INFORMATION
  Report Type: Spontaneous
  Country: US (occurrence: US)
  Receive Date: 20200824
  Receipt Date: 20200824
  Transmission Date: 20201103
  Serious: Yes (Other)
  Sender: FDA-Public Use
  Company Number: US-PFIZER INC-2020326060

PATIENT
  Sex: Female

DRUGS (1)
  1. DAYPRO [Suspect]
     Active Substance: OXAPROZIN
     Indication: RHEUMATOID ARTHRITIS
     Dosage: 600 MG, 2X/DAY
     Route: 048

REACTIONS (2)
  - Renal impairment [Recovered/Resolved]
  - Nephrolithiasis [Unknown]
